FAERS Safety Report 16465659 (Version 2)
Quarter: 2019Q2

REPORT INFORMATION
  Report Type: Spontaneous
  Country: GB (occurrence: GB)
  Receive Date: 20190621
  Receipt Date: 20190628
  Transmission Date: 20190711
  Serious: Yes (Hospitalization)
  Sender: FDA-Public Use
  Company Number: PHHY2019GB139337

PATIENT
  Age: 51 Year
  Sex: Female

DRUGS (2)
  1. CISPLATIN. [Suspect]
     Active Substance: CISPLATIN
     Indication: CERVIX CARCINOMA STAGE IV
     Dosage: 50 MG/M2, ON DAY 1 (THREE-WEEKLY CYCLES)
     Route: 042
  2. TOPOTECAN [Suspect]
     Active Substance: TOPOTECAN HYDROCHLORIDE
     Indication: CERVIX CARCINOMA STAGE IV
     Dosage: 0.75 MG/M2, ON DAY 1, 2 AND 3
     Route: 042

REACTIONS (2)
  - Febrile neutropenia [Recovered/Resolved]
  - Aortitis [Recovered/Resolved]
